FAERS Safety Report 15521818 (Version 1)
Quarter: 2018Q4

REPORT INFORMATION
  Report Type: Spontaneous
  Country: US (occurrence: US)
  Receive Date: 20181018
  Receipt Date: 20181018
  Transmission Date: 20190205
  Serious: Yes (Other)
  Sender: FDA-Public Use
  Company Number: None

PATIENT
  Age: 59 Year
  Sex: Male
  Weight: 110.25 kg

DRUGS (23)
  1. MULTI-VITAMIN [Concomitant]
     Active Substance: .ALPHA.-TOCOPHEROL ACETATE, DL-\ASCORBIC ACID\CYANOCOBALAMIN\FLUORIDE ION\FOLIC ACID\NIACIN\PYRIDOXINE\RIBOFLAVIN\THIAMINE\VITAMIN A\VITAMIN D
  2. PREDNISONE. [Concomitant]
     Active Substance: PREDNISONE
  3. AMLODIPINE [Concomitant]
     Active Substance: AMLODIPINE BESYLATE
  4. CLINDAMYCIN. [Concomitant]
     Active Substance: CLINDAMYCIN
  5. TRETINOIN. [Concomitant]
     Active Substance: TRETINOIN
  6. SITAGLIPTIN [Concomitant]
     Active Substance: SITAGLIPTIN
  7. MYCOPHENOLATE DR [Concomitant]
  8. TBEC [Concomitant]
  9. TAMSULOSIN [Concomitant]
     Active Substance: TAMSULOSIN
  10. ALLOPURINOL. [Concomitant]
     Active Substance: ALLOPURINOL
  11. CHOLECALCIFEROL [Concomitant]
     Active Substance: CHOLECALCIFEROL
  12. ASPIRIN. [Concomitant]
     Active Substance: ASPIRIN
  13. TESTOSTERONE. [Concomitant]
     Active Substance: TESTOSTERONE
  14. CLOBETASOL [Concomitant]
     Active Substance: CLOBETASOL
  15. METOPROLOL TARTRATE. [Concomitant]
     Active Substance: METOPROLOL TARTRATE
  16. MAGNESIUM OXIDE. [Concomitant]
     Active Substance: MAGNESIUM OXIDE
  17. MUPIROCIN. [Concomitant]
     Active Substance: MUPIROCIN
  18. OMEGA-3 ACID ETHYL ESTERS [Concomitant]
     Active Substance: OMEGA-3-ACID ETHYL ESTERS
  19. REPATHA [Suspect]
     Active Substance: EVOLOCUMAB
     Indication: LOW DENSITY LIPOPROTEIN INCREASED
     Dosage: 1 INJECTION(S); 2 WEEKS; INJECTION AROUND STOMACH AREA?
     Dates: start: 20180822, end: 20181011
  20. EZETIMIBE. [Concomitant]
     Active Substance: EZETIMIBE
  21. EMPAGLIFLOZIN [Concomitant]
     Active Substance: EMPAGLIFLOZIN
  22. PROGRAF [Concomitant]
     Active Substance: TACROLIMUS\TACROLIMUS ANHYDROUS
  23. ACYCLOVIR. [Concomitant]
     Active Substance: ACYCLOVIR

REACTIONS (3)
  - Pain in extremity [None]
  - Post procedural complication [None]
  - Arthralgia [None]

NARRATIVE: CASE EVENT DATE: 20181011
